FAERS Safety Report 7867644-6 (Version None)
Quarter: 2011Q4

REPORT INFORMATION
  Report Type: 
  Country: None (occurrence: None)
  Receive Date: 20111028
  Receipt Date: 20111024
  Transmission Date: 20120403
  Serious: Yes (Other)
  Sender: FDA-Public Use
  Company Number: PHHY2011BR93962

PATIENT
  Age: 72 Year
  Sex: Female

DRUGS (2)
  1. ABLOK PLUS [Concomitant]
     Dosage: UNK
  2. EXFORGE [Suspect]
     Indication: BLOOD PRESSURE
     Dosage: 1 DF (160/5MG) DAILY

REACTIONS (1)
  - THROMBOSIS [None]
